FAERS Safety Report 6247709-5 (Version None)
Quarter: 2009Q2

REPORT INFORMATION
  Report Type: 
  Country: None (occurrence: None)
  Receive Date: 20090626
  Receipt Date: 20090616
  Transmission Date: 20091009
  Serious: Yes (Disabling)
  Sender: FDA-Public Use
  Company Number: PHHY2009ES21627

PATIENT
  Age: 65 Year
  Sex: Male

DRUGS (5)
  1. SANDIMMUNE [Suspect]
     Indication: PSORIASIS
     Dosage: 200 MG, QD
     Route: 048
     Dates: start: 20090501, end: 20090528
  2. METFORMIN HCL [Concomitant]
  3. DIAMICRON [Concomitant]
  4. SIMVASTATIN [Concomitant]
  5. PERMIXON [Concomitant]

REACTIONS (1)
  - HAEMATOMA [None]
